FAERS Safety Report 12257734 (Version 1)
Quarter: 2016Q2

REPORT INFORMATION
  Report Type: Spontaneous
  Country: US (occurrence: US)
  Receive Date: 20160412
  Receipt Date: 20160412
  Transmission Date: 20160815
  Serious: Yes (Other)
  Sender: FDA-Public Use
  Company Number: US-ASTELLAS-2015US041064

PATIENT
  Age: 60 Year
  Sex: Male

DRUGS (1)
  1. ADENOSCAN [Suspect]
     Active Substance: ADENOSINE
     Indication: CARDIAC STRESS TEST
     Dosage: UNK UNK, UNKNOWN FREQ.
     Route: 065

REACTIONS (11)
  - Syncope [Unknown]
  - Diarrhoea [Unknown]
  - Feeling abnormal [Unknown]
  - Malaise [Unknown]
  - Nausea [Unknown]
  - Paraesthesia [Unknown]
  - Melanocytic naevus [Unknown]
  - Neuropathy peripheral [Unknown]
  - Weight decreased [Unknown]
  - Dyspnoea [Unknown]
  - Dizziness [Unknown]
